FAERS Safety Report 19371397 (Version 1)
Quarter: 2021Q2

REPORT INFORMATION
  Report Type: Spontaneous
  Country: US (occurrence: US)
  Receive Date: 20210603
  Receipt Date: 20210603
  Transmission Date: 20210717
  Serious: No
  Sender: FDA-Public Use
  Company Number: US-SA-2021SA181414

PATIENT
  Sex: Male

DRUGS (1)
  1. THYROGEN [Suspect]
     Active Substance: THYROTROPIN ALFA
     Indication: PLASMA CELL MYELOMA
     Dosage: 1.1MG VIAL 2^S, 24 HOURS X 2 DOSES  0.9 MG
     Route: 030

REACTIONS (2)
  - Product use in unapproved indication [Unknown]
  - Nasal congestion [Unknown]
